FAERS Safety Report 7296990-2 (Version None)
Quarter: 2011Q1

REPORT INFORMATION
  Report Type: 
  Country: None (occurrence: None)
  Receive Date: 20110216
  Receipt Date: 20110211
  Transmission Date: 20110831
  Serious: Yes (Life-Threatening, Hospitalization)
  Sender: FDA-Public Use
  Company Number: NL-JNJFOC-20101104048

PATIENT
  Age: 14 Year
  Sex: Female

DRUGS (6)
  1. CONCERTA [Suspect]
     Route: 065
  2. CONCERTA [Suspect]
     Indication: ATTENTION DEFICIT/HYPERACTIVITY DISORDER
     Dosage: 9-SEP-2010/10-SEP-2010
     Route: 065
  3. CONCERTA [Suspect]
     Dosage: IN THE MORNING
     Route: 065
  4. PARACETAMOL [Suspect]
     Route: 065
  5. MORFINE [Suspect]
     Indication: ILL-DEFINED DISORDER
     Route: 065
  6. PARACETAMOL [Suspect]
     Indication: ILL-DEFINED DISORDER
     Dosage: 40 TABLETS TAKEN AT NIGHT
     Route: 065

REACTIONS (5)
  - SOMNOLENCE [None]
  - SUICIDAL IDEATION [None]
  - SUICIDE ATTEMPT [None]
  - MULTIPLE DRUG OVERDOSE INTENTIONAL [None]
  - NAUSEA [None]
